FAERS Safety Report 8900762 (Version 2)
Quarter: 2013Q1

REPORT INFORMATION
  Report Type: Report from Study
  Country: JP (occurrence: JP)
  Receive Date: 20121109
  Receipt Date: 20130306
  Transmission Date: 20140127
  Serious: Yes (Other)
  Sender: FDA-Public Use
  Company Number: JP-CELGENEUS-087-21880-11082257

PATIENT
  Age: 72 Year
  Sex: Male

DRUGS (9)
  1. REVLIMID [Suspect]
     Indication: PLASMA CELL MYELOMA
     Dosage: 15 MILLIGRAM
     Route: 048
     Dates: start: 20101118, end: 20101201
  2. REVLIMID [Suspect]
     Dosage: 15 MILLIGRAM
     Route: 048
     Dates: start: 20101209, end: 20101216
  3. DEXAMETHASONE [Suspect]
     Indication: PLASMA CELL MYELOMA
     Dosage: 10 MILLIGRAM
     Route: 041
     Dates: start: 20101118, end: 20101125
  4. DEXAMETHASONE [Suspect]
     Dosage: 10 MILLIGRAM
     Route: 041
     Dates: start: 20101209, end: 20101216
  5. BLOPRESS [Concomitant]
     Indication: HYPERTENSION
     Dosage: 8 MILLIGRAM
     Route: 048
     Dates: start: 20101118, end: 20101216
  6. ADALAT-CR [Concomitant]
     Indication: HYPERTENSION
     Dosage: 20 MILLIGRAM
     Route: 048
     Dates: start: 20101118, end: 20101216
  7. METHYCOBAL [Concomitant]
     Indication: NEUROPATHY PERIPHERAL
     Dosage: 1000 MILLIGRAM
     Route: 048
     Dates: start: 20101118, end: 20101216
  8. ZOVIRAX [Concomitant]
     Indication: PROPHYLAXIS
     Dosage: 200 MILLIGRAM
     Route: 048
     Dates: start: 20101118, end: 20101216
  9. PLAVIX [Concomitant]
     Indication: CEREBRAL INFARCTION
     Dosage: 75 MILLIGRAM
     Route: 048
     Dates: start: 20101118, end: 20101216

REACTIONS (3)
  - Blood creatinine increased [Recovering/Resolving]
  - Anaemia [Not Recovered/Not Resolved]
  - Pyrexia [Recovered/Resolved]
